FAERS Safety Report 9103861 (Version 2)
Quarter: 2013Q1

REPORT INFORMATION
  Report Type: Spontaneous
  Country: GR (occurrence: GR)
  Receive Date: 20130219
  Receipt Date: 20130315
  Transmission Date: 20140127
  Serious: Yes (Death, Other)
  Sender: FDA-Public Use
  Company Number: GR-PFIZER INC-2013057437

PATIENT
  Age: 39 Year
  Sex: Female

DRUGS (5)
  1. EPIRUBICIN HCL [Suspect]
     Indication: BREAST CANCER
     Dosage: 4 CYCLES
  2. FLUOROURACIL [Suspect]
     Indication: BREAST CANCER
     Dosage: 4 CYCLES
  3. CYCLOPHOSPHAMIDE [Suspect]
     Indication: BREAST CANCER
     Dosage: 4 CYCLES
  4. TAXOTERE [Suspect]
     Indication: BREAST CANCER
     Dosage: 4 CYCLES
  5. BEVACIZUMAB [Suspect]
     Indication: BREAST CANCER
     Dosage: 4 CYCLES

REACTIONS (3)
  - Portal vein thrombosis [Fatal]
  - Cholecystitis acute [Unknown]
  - Hepatic steatosis [Unknown]
